FAERS Safety Report 6036462-6 (Version None)
Quarter: 2009Q1

REPORT INFORMATION
  Report Type: 
  Country: None (occurrence: None)
  Receive Date: 20090112
  Receipt Date: 20090102
  Transmission Date: 20090719
  Serious: Yes (Other)
  Sender: FDA-Public Use
  Company Number: CHPA2009US00466

PATIENT
  Sex: Female

DRUGS (2)
  1. MAALOX ANTACID/ANTIGAS MAX QDTABS ASST (NCH) (CALCIUM CARABONATE, SIME [Suspect]
     Indication: DYSPEPSIA
     Dosage: PRN, ORAL
     Route: 048
  2. MAALOX ANTIACID/ANTIGAS MAX LIQ UNKNOWN (NCH) (UNKNOWN) SUSPENSION [Suspect]
     Indication: DYSPEPSIA
     Dosage: ORAL
     Route: 048

REACTIONS (4)
  - DIZZINESS [None]
  - MALAISE [None]
  - NAUSEA [None]
  - NEOPLASM MALIGNANT [None]
